FAERS Safety Report 12390679 (Version 5)
Quarter: 2016Q3

REPORT INFORMATION
  Report Type: Spontaneous
  Country: BR (occurrence: BR)
  Receive Date: 20160520
  Receipt Date: 20160707
  Transmission Date: 20161109
  Serious: Yes (Hospitalization)
  Sender: FDA-Public Use
  Company Number: BR-CELGENEUS-BRA-2016054761

PATIENT
  Age: 73 Year
  Sex: Female
  Weight: 45.4 kg

DRUGS (1)
  1. VIDAZA [Suspect]
     Active Substance: AZACITIDINE
     Indication: MYELODYSPLASTIC SYNDROME
     Route: 065

REACTIONS (6)
  - Febrile neutropenia [Recovered/Resolved]
  - Epistaxis [Recovered/Resolved]
  - Febrile neutropenia [Recovered/Resolved]
  - Thrombophlebitis [Recovered/Resolved]
  - Urinary tract infection [Recovered/Resolved]
  - Urinary tract infection [Recovered/Resolved]

NARRATIVE: CASE EVENT DATE: 20151108
